FAERS Safety Report 25736654 (Version 1)
Quarter: 2025Q3

REPORT INFORMATION
  Report Type: Spontaneous
  Country: CA (occurrence: CA)
  Receive Date: 20250828
  Receipt Date: 20250828
  Transmission Date: 20251020
  Serious: Yes (Other)
  Sender: PFIZER
  Company Number: CA-PFIZER INC-202500167455

PATIENT
  Age: 51 Year
  Sex: Female

DRUGS (6)
  1. RUXIENCE [Suspect]
     Active Substance: RITUXIMAB-PVVR
     Indication: Rheumatoid arthritis
     Route: 042
     Dates: start: 20240229, end: 20240314
  2. RUXIENCE [Suspect]
     Active Substance: RITUXIMAB-PVVR
     Route: 042
     Dates: start: 20240823, end: 20240905
  3. RUXIENCE [Suspect]
     Active Substance: RITUXIMAB-PVVR
     Route: 042
     Dates: start: 20250305, end: 20250319
  4. FOLIC ACID [Concomitant]
     Active Substance: FOLIC ACID
  5. METHYLPREDNISOLONE [Concomitant]
     Active Substance: METHYLPREDNISOLONE
  6. PREDNISONE [Concomitant]
     Active Substance: PREDNISONE

REACTIONS (1)
  - Thyroid disorder [Unknown]
